FAERS Safety Report 19780113 (Version 1)
Quarter: 2021Q3

REPORT INFORMATION
  Report Type: Other
  Country: AR (occurrence: AR)
  Receive Date: 20210902
  Receipt Date: 20210902
  Transmission Date: 20211014
  Serious: Yes (Hospitalization)
  Sender: FDA-Public Use
  Company Number: AR-ROCHE-2506085

PATIENT
  Age: 43 Year
  Sex: Female

DRUGS (2)
  1. XOLAIR [Suspect]
     Active Substance: OMALIZUMAB
     Indication: ASTHMA
     Route: 058
     Dates: start: 20160401
  2. XOLAIR [Suspect]
     Active Substance: OMALIZUMAB
     Indication: ASTHMA
     Dosage: 300 MG
     Route: 065
     Dates: start: 20160401, end: 20191011

REACTIONS (8)
  - Degenerative bone disease [Not Recovered/Not Resolved]
  - Cervix disorder [Unknown]
  - Abdominal pain [Recovering/Resolving]
  - General physical health deterioration [Unknown]
  - Gait disturbance [Recovering/Resolving]
  - Intervertebral disc protrusion [Not Recovered/Not Resolved]
  - Precancerous cells present [Unknown]
  - Scoliosis [Not Recovered/Not Resolved]
